FAERS Safety Report 21425719 (Version 1)
Quarter: 2022Q4

REPORT INFORMATION
  Report Type: Spontaneous
  Country: FR (occurrence: FR)
  Receive Date: 20221008
  Receipt Date: 20221008
  Transmission Date: 20230112
  Serious: Yes (Other)
  Sender: FDA-Public Use
  Company Number: None

PATIENT
  Age: 45 Year
  Sex: Male
  Weight: 79 kg

DRUGS (4)
  1. OXALIPLATIN [Suspect]
     Active Substance: OXALIPLATIN
     Indication: Rectal cancer
     Dosage: 150 MG/COURSE, UNIT DOSE: 960 MG, FRQ TIME 1 TOTAL, DURATION 71 DAYS
     Dates: start: 20220509, end: 20220719
  2. FLUOROURACIL [Suspect]
     Active Substance: FLUOROURACIL
     Indication: Rectal cancer
     Dosage: 3950 MG/COURSE, UNIT DOSE: 29250 MG, FRQ TIME 1 TOTAL, DURATION 71 DAYS
     Dates: start: 20220509, end: 20220719
  3. IRINOTECAN [Suspect]
     Active Substance: IRINOTECAN
     Indication: Rectal cancer
     Dosage: 300 MG/COURSE, UNIT DOSE: 2100 MG, FRQ TIME 1 TOTAL, DURATION 71 DAYS
     Dates: start: 20220509, end: 20220719
  4. CALCIUM (LEVOFOLINATE  DE) [Concomitant]
     Indication: Rectal cancer
     Dosage: 400MG/COURSE, UNIT DOSE: 2400 MG, FREQ TIME 1 TOTAL, DURATION 71 DAYS
     Dates: start: 20220509, end: 20220719

REACTIONS (1)
  - Pulmonary embolism [Not Recovered/Not Resolved]

NARRATIVE: CASE EVENT DATE: 20220726
